FAERS Safety Report 4488743-5 (Version None)
Quarter: 2004Q4

REPORT INFORMATION
  Report Type: 
  Country: None (occurrence: None)
  Receive Date: 20041025
  Receipt Date: 20041012
  Transmission Date: 20050328
  Serious: Yes (Other)
  Sender: FDA-Public Use
  Company Number: 2004007833

PATIENT
  Age: 62 Year
  Sex: Female

DRUGS (5)
  1. AMLODIPINE (AMLODIPINE) [Suspect]
     Indication: HYPERTENSION
     Dosage: 5 MG (1 D)
     Dates: end: 20041012
  2. SPIRONOLACTONE [Suspect]
     Indication: ILL-DEFINED DISORDER
     Dates: start: 20040124, end: 20041012
  3. ALDACTAZINE (ALTIZIDE, SPIRONOLACTONE) [Suspect]
     Indication: HYPERTENSION
     Dates: start: 20010101, end: 20030101
  4. PROPRANOLOL [Suspect]
     Indication: ILL-DEFINED DISORDER
  5. ATENOLOL [Suspect]
     Indication: ILL-DEFINED DISORDER

REACTIONS (9)
  - ALOPECIA [None]
  - CONDITION AGGRAVATED [None]
  - HEADACHE [None]
  - HYPERTENSION [None]
  - HYPOKALAEMIA [None]
  - OEDEMA PERIPHERAL [None]
  - PRURITUS [None]
  - STRESS SYMPTOMS [None]
  - VITREOUS DETACHMENT [None]
